APPROVED DRUG PRODUCT: ISTODAX
Active Ingredient: ROMIDEPSIN
Strength: 10MG/VIAL
Dosage Form/Route: POWDER;INTRAVENOUS
Application: N022393 | Product #001 | TE Code: AP
Applicant: BRISTOL-MYERS SQUIBB CO
Approved: Nov 5, 2009 | RLD: Yes | RS: Yes | Type: RX